FAERS Safety Report 4285019-6 (Version None)
Quarter: 2004Q1

REPORT INFORMATION
  Report Type: 
  Country: None (occurrence: None)
  Receive Date: 20040202
  Receipt Date: 20040129
  Transmission Date: 20041129
  Serious: Yes (Death)
  Sender: FDA-Public Use
  Company Number: USA-2003-0007803

PATIENT
  Age: 75 Year
  Sex: Male

DRUGS (7)
  1. OXYCODONE HCL [Suspect]
     Indication: CANCER PAIN
  2. AMITRIPTYLINE HCL [Suspect]
  3. SALICYLIC ACID (SALICYLIC ACID) [Suspect]
  4. DIPHENHYDRAMINE HCL [Suspect]
  5. METOCLOPRAMIDE [Suspect]
  6. NORTRIPTYLINE HCL [Suspect]
  7. ACETONE (ACETONE) [Suspect]

REACTIONS (15)
  - BENIGN PROSTATIC HYPERPLASIA [None]
  - BLOOD KETONE BODY PRESENT [None]
  - BONE NEOPLASM MALIGNANT [None]
  - CARCINOID TUMOUR [None]
  - CARDIOMEGALY [None]
  - COMPLETED SUICIDE [None]
  - CORONARY ARTERY ATHEROSCLEROSIS [None]
  - DRUG SCREEN POSITIVE [None]
  - GUN SHOT WOUND [None]
  - HEPATIC STEATOSIS [None]
  - KYPHOSCOLIOSIS [None]
  - MULTIPLE FRACTURES [None]
  - NEPHROSCLEROSIS [None]
  - SKULL FRACTURED BASE [None]
  - SPINAL OSTEOARTHRITIS [None]
